FAERS Safety Report 6615293-X (Version None)
Quarter: 2010Q1

REPORT INFORMATION
  Report Type: 
  Country: None (occurrence: None)
  Receive Date: 20100305
  Receipt Date: 20100222
  Transmission Date: 20100710
  Serious: Yes (Other)
  Sender: FDA-Public Use
  Company Number: US-WYE-H13738710

PATIENT
  Sex: Male

DRUGS (4)
  1. PRISTIQ [Suspect]
     Indication: DEPRESSION
     Route: 048
     Dates: start: 20091209, end: 20091201
  2. PRISTIQ [Suspect]
     Route: 048
     Dates: start: 20100217
  3. TOPOTECAN [Suspect]
     Indication: LUNG NEOPLASM MALIGNANT
     Dosage: 4 MG FOR 5 DYAS Q 3 WEEKS
     Route: 048
  4. SINGULAIR [Concomitant]
     Indication: SINUS DISORDER
     Dosage: UNKNOWN

REACTIONS (6)
  - AMNESIA [None]
  - BLOOD SODIUM DECREASED [None]
  - CONFUSIONAL STATE [None]
  - GAIT DISTURBANCE [None]
  - NAUSEA [None]
  - SPEECH DISORDER [None]
